FAERS Safety Report 18339360 (Version 1)
Quarter: 2020Q4

REPORT INFORMATION
  Report Type: Spontaneous
  Country: US (occurrence: US)
  Receive Date: 20201002
  Receipt Date: 20201002
  Transmission Date: 20210113
  Serious: Yes (Hospitalization)
  Sender: FDA-Public Use
  Company Number: None

PATIENT
  Age: 62 Year
  Sex: Female
  Weight: 58.5 kg

DRUGS (13)
  1. FLECAINIDE [Concomitant]
     Active Substance: FLECAINIDE
  2. SERTRALINE [Concomitant]
     Active Substance: SERTRALINE HYDROCHLORIDE
  3. CENTRUM [Concomitant]
     Active Substance: VITAMINS
  4. DULOXETINE. [Concomitant]
     Active Substance: DULOXETINE
  5. VITAMIN D [Concomitant]
     Active Substance: VITAMIN D NOS
  6. FISH OIL [Concomitant]
     Active Substance: FISH OIL
  7. ASPIRIN. [Concomitant]
     Active Substance: ASPIRIN
  8. CANNABIS [Concomitant]
     Active Substance: CANNABIS SATIVA SUBSP. INDICA TOP
  9. MELATONIN AND MAGNESIUM [Concomitant]
  10. L-THEANINE [Concomitant]
     Active Substance: DIETARY SUPPLEMENT
  11. DILTIAZEM. [Concomitant]
     Active Substance: DILTIAZEM
  12. ALPRAZOLAM. [Concomitant]
     Active Substance: ALPRAZOLAM
  13. OCREVUS [Suspect]
     Active Substance: OCRELIZUMAB
     Indication: MULTIPLE SCLEROSIS
     Dosage: ?          QUANTITY:1 INJECTION(S);OTHER FREQUENCY:EVERY 6 MONTHS;?
     Route: 042

REACTIONS (2)
  - Pleural effusion [None]
  - Pneumonia [None]

NARRATIVE: CASE EVENT DATE: 20200530
